FAERS Safety Report 8170292-4 (Version None)
Quarter: 2012Q1

REPORT INFORMATION
  Report Type: 
  Country: None (occurrence: None)
  Receive Date: 20120228
  Receipt Date: 20120223
  Transmission Date: 20120608
  Serious: Yes (Hospitalization)
  Sender: FDA-Public Use
  Company Number: PHHY2011FR90739

PATIENT
  Sex: Male

DRUGS (6)
  1. TEGRETOL [Suspect]
     Indication: PERSONALITY DISORDER
     Dosage: UNK UKN, UNK
     Dates: start: 20110902, end: 20110923
  2. AOTAL [Concomitant]
     Dosage: UNK UKN, UNK
  3. VALIUM [Concomitant]
     Dosage: UNK UKN, UNK
  4. CYMBALTA [Suspect]
     Indication: MAJOR DEPRESSION
  5. IMOVANE [Concomitant]
     Dosage: UNK UKN, UNK
  6. CYMBALTA [Suspect]
     Indication: PERSONALITY DISORDER
     Dosage: UNK UKN, UNK
     Dates: start: 20110824, end: 20110923

REACTIONS (39)
  - CYTOLYTIC HEPATITIS [None]
  - VITAMIN B12 INCREASED [None]
  - BRAIN NATRIURETIC PEPTIDE ABNORMAL [None]
  - ERYTHEMA [None]
  - TONGUE OEDEMA [None]
  - ENANTHEMA [None]
  - SCROTAL ULCER [None]
  - SCAR [None]
  - OPTIC NERVE CUPPING [None]
  - PSEUDOMONAS TEST POSITIVE [None]
  - GENITAL EROSION [None]
  - BODY TEMPERATURE INCREASED [None]
  - PO2 INCREASED [None]
  - BLOOD FIBRINOGEN DECREASED [None]
  - ANTINUCLEAR ANTIBODY POSITIVE [None]
  - RASH [None]
  - SKIN EXFOLIATION [None]
  - CHOLESTASIS [None]
  - APOPTOSIS [None]
  - LIP EROSION [None]
  - BLOOD PHOSPHORUS DECREASED [None]
  - CHLAMYDIA TEST POSITIVE [None]
  - TOXIC EPIDERMAL NECROLYSIS [None]
  - ODYNOPHAGIA [None]
  - BLISTER [None]
  - STEVENS-JOHNSON SYNDROME [None]
  - CORYNEBACTERIUM TEST POSITIVE [None]
  - ORAL DISORDER [None]
  - SKIN LESION [None]
  - MUCOSAL INFLAMMATION [None]
  - CONJUNCTIVAL HYPERAEMIA [None]
  - VOCAL CORD INFLAMMATION [None]
  - RHABDOMYOLYSIS [None]
  - EPIDERMAL NECROSIS [None]
  - NIKOLSKY'S SIGN [None]
  - HEART RATE INCREASED [None]
  - BLOOD SODIUM DECREASED [None]
  - BLOOD POTASSIUM DECREASED [None]
  - ANTIBIOTIC RESISTANT STAPHYLOCOCCUS TEST POSITIVE [None]
